FAERS Safety Report 18906879 (Version 5)
Quarter: 2021Q2

REPORT INFORMATION
  Report Type: Spontaneous
  Country: US (occurrence: US)
  Receive Date: 20210217
  Receipt Date: 20210518
  Transmission Date: 20210717
  Serious: Yes (Other)
  Sender: FDA-Public Use
  Company Number: US-PFIZER INC-2021136728

PATIENT
  Age: 64 Year
  Sex: Female

DRUGS (2)
  1. XELJANZ [Suspect]
     Active Substance: TOFACITINIB CITRATE
     Dosage: 5 MG
     Dates: start: 20210205, end: 20210228
  2. XELJANZ [Suspect]
     Active Substance: TOFACITINIB CITRATE
     Indication: RHEUMATOID ARTHRITIS
     Dosage: 5 MG (XELJANZ FOR 7 WEEKS)
     Dates: start: 20201217, end: 20210204

REACTIONS (7)
  - Weight increased [Unknown]
  - Hypertension [Unknown]
  - Drug effect less than expected [Recovering/Resolving]
  - Musculoskeletal disorder [Recovering/Resolving]
  - Pain [Not Recovered/Not Resolved]
  - Oedema peripheral [Unknown]
  - Renal impairment [Unknown]

NARRATIVE: CASE EVENT DATE: 202102
